FAERS Safety Report 4770963-3 (Version None)
Quarter: 2005Q3

REPORT INFORMATION
  Report Type: 
  Country: None (occurrence: None)
  Receive Date: 20050914
  Receipt Date: 20050831
  Transmission Date: 20060218
  Serious: Yes (Hospitalization)
  Sender: FDA-Public Use
  Company Number: FR_050907043

PATIENT
  Age: 85 Year
  Sex: Female

DRUGS (10)
  1. FORTEO [Suspect]
     Indication: OSTEOPOROSIS
     Dosage: 20 UG DAY
     Dates: start: 20050422
  2. FORADIL [Concomitant]
  3. QVAR (BECLOMETASONE DIPROPIONATE) [Concomitant]
  4. VIRLIX (CETIRIZINE HYDROCHLORIDE) [Concomitant]
  5. CALDINE (LACIDIPINE) [Concomitant]
  6. PLAVIX [Concomitant]
  7. COZAAR [Concomitant]
  8. ZOCOR [Concomitant]
  9. DAFLON (DIOSMIN) [Concomitant]
  10. ACETAMINOPHEN [Concomitant]

REACTIONS (1)
  - DIARRHOEA HAEMORRHAGIC [None]
